FAERS Safety Report 13027624 (Version 5)
Quarter: 2017Q1

REPORT INFORMATION
  Report Type: Report from Study
  Country: BR (occurrence: BR)
  Receive Date: 20161214
  Receipt Date: 20170313
  Transmission Date: 20170428
  Serious: Yes (Other)
  Sender: FDA-Public Use
  Company Number: BR-JNJFOC-20161205516

PATIENT
  Age: 40 Year
  Sex: Female

DRUGS (7)
  1. IMBRUVICA [Suspect]
     Active Substance: IBRUTINIB
     Indication: LYMPHOCYTIC LYMPHOMA
     Route: 048
     Dates: end: 2017
  2. IMBRUVICA [Suspect]
     Active Substance: IBRUTINIB
     Indication: LYMPHOCYTIC LYMPHOMA
     Route: 048
     Dates: start: 20160905
  3. PREGABALIN. [Concomitant]
     Active Substance: PREGABALIN
     Route: 065
  4. LAMOTRIGINE. [Concomitant]
     Active Substance: LAMOTRIGINE
     Route: 065
  5. IMBRUVICA [Suspect]
     Active Substance: IBRUTINIB
     Indication: CHRONIC LYMPHOCYTIC LEUKAEMIA
     Route: 048
     Dates: end: 2017
  6. IMBRUVICA [Suspect]
     Active Substance: IBRUTINIB
     Indication: CHRONIC LYMPHOCYTIC LEUKAEMIA
     Route: 048
     Dates: start: 20160905
  7. ARISTAB [Concomitant]
     Active Substance: ARIPIPRAZOLE
     Route: 065

REACTIONS (8)
  - Fibromyalgia [Unknown]
  - Lymphocyte count decreased [Unknown]
  - Chronic lymphocytic leukaemia [Unknown]
  - Hysterectomy [Unknown]
  - Menorrhagia [Unknown]
  - Malabsorption [Unknown]
  - Back pain [Unknown]
  - Drug ineffective [Unknown]

NARRATIVE: CASE EVENT DATE: 2016
